FAERS Safety Report 11941060 (Version 1)
Quarter: 2016Q1

REPORT INFORMATION
  Report Type: Spontaneous
  Country: GB (occurrence: GB)
  Receive Date: 20160122
  Receipt Date: 20160122
  Transmission Date: 20160526
  Serious: Yes (Life-Threatening, Hospitalization)
  Sender: FDA-Public Use
  Company Number: GB-TEVA-626611ACC

PATIENT
  Age: 72 Year
  Sex: Male

DRUGS (16)
  1. PARACETAMOL [Concomitant]
     Active Substance: ACETAMINOPHEN
     Dosage: 1-2, 4 TIMES A DAY
  2. NINTEDANIB [Suspect]
     Active Substance: NINTEDANIB
     Indication: LUNG ADENOCARCINOMA
     Dosage: 400 MILLIGRAM DAILY; INTENDED FOR 20 DAY COURSE
     Route: 048
     Dates: start: 20151201, end: 20151209
  3. SIMVASTATIN. [Concomitant]
     Active Substance: SIMVASTATIN
     Dosage: 40 MILLIGRAM DAILY; AT NIGHT.
  4. GALEN LTD SALINE [Concomitant]
  5. DOXYCYCLINE. [Concomitant]
     Active Substance: DOXYCYCLINE
     Dosage: TWO TO BE TAKEN ON THE FIRST DAY THEN ONE TO BE TAKEN EACH DAY
     Dates: start: 20151012
  6. DOCETAXEL. [Suspect]
     Active Substance: DOCETAXEL
     Indication: LUNG ADENOCARCINOMA
     Dosage: INTENDED FOR 20 DAY COURSE
     Dates: start: 20151201, end: 20151209
  7. DEPO-MEDRONE WITH LIDOCAINE [Concomitant]
     Active Substance: LIDOCAINE HYDROCHLORIDE\METHYLPREDNISOLONE ACETATE
     Dosage: INJECTION INTO RIGHT KNEE
     Dates: start: 20151012, end: 20151012
  8. FOSTAIR [Concomitant]
     Active Substance: BECLOMETHASONE\FORMOTEROL
     Dosage: 4 DOSAGE FORMS DAILY; PUFFS. 100MICROGRAMS/DOSE/6MICROGRAMS/DOSE
     Route: 055
  9. OXYCONTIN [Concomitant]
     Active Substance: OXYCODONE HYDROCHLORIDE
     Dosage: 20 MILLIGRAM DAILY;
     Dates: start: 20140620
  10. DEXAMETHASONE. [Concomitant]
     Active Substance: DEXAMETHASONE
     Indication: CHEMOTHERAPY
     Dosage: 16 MILLIGRAM DAILY; PRE-CHEMOTHERAPY
  11. OXYNORM [Concomitant]
     Active Substance: OXYCODONE HYDROCHLORIDE
     Indication: PAIN
     Dates: start: 20141121
  12. SIMPLE LINCTUS [Concomitant]
     Active Substance: AMARANTH\CHLOROFORM\CITRIC ACID MONOHYDRATE\PIMPINELLA ANISUM WHOLE
     Dosage: 15 ML DAILY;
     Dates: start: 20151027
  13. VENTOLIN [Concomitant]
     Active Substance: ALBUTEROL SULFATE
     Dosage: 200MICROGRAMS/DOSE ACCUHALER. ONE DOSE UP TO FOUR TIMES A DAY - ALSO USES A EASYHALER
     Route: 055
  14. SENNA [Concomitant]
     Active Substance: SENNA LEAF\SENNOSIDES\SENNOSIDES A AND B
     Indication: CONSTIPATION
     Dosage: 1 OR 2 AT NIGHT.
  15. LANSOPRAZOLE. [Concomitant]
     Active Substance: LANSOPRAZOLE
     Dosage: 30 MILLIGRAM DAILY;
  16. ACLIDINIUM BROMIDE [Concomitant]
     Active Substance: ACLIDINIUM BROMIDE
     Dosage: 2 DOSAGE FORMS DAILY; 375MICROGRAMS/DOSE
     Route: 055

REACTIONS (9)
  - Neutrophil count decreased [Recovering/Resolving]
  - Mouth ulceration [Recovering/Resolving]
  - Malaise [Unknown]
  - Lethargy [Unknown]
  - Hiccups [Unknown]
  - Neutropenic sepsis [Recovered/Resolved]
  - Diarrhoea [Recovered/Resolved]
  - Lung consolidation [Unknown]
  - Pleural effusion [Unknown]

NARRATIVE: CASE EVENT DATE: 20151209
